FAERS Safety Report 20920107 (Version 1)
Quarter: 2022Q2

REPORT INFORMATION
  Report Type: Spontaneous
  Country: US (occurrence: None)
  Receive Date: 20220605
  Receipt Date: 20220605
  Transmission Date: 20220720
  Serious: No
  Sender: FDA-Public Use
  Company Number: None

PATIENT
  Age: 35 Year
  Sex: Female
  Weight: 94.5 kg

DRUGS (1)
  1. BALCOLTRA [Suspect]
     Active Substance: ETHINYL ESTRADIOL\LEVONORGESTREL
     Indication: Contraception
     Dosage: FREQUENCY : DAILY;?
     Route: 048

REACTIONS (2)
  - Vaginal haemorrhage [None]
  - Vulvovaginal pruritus [None]

NARRATIVE: CASE EVENT DATE: 20220415
